FAERS Safety Report 9319646 (Version 11)
Quarter: 2015Q3

REPORT INFORMATION
  Report Type: Spontaneous
  Country: US (occurrence: US)
  Receive Date: 20130530
  Receipt Date: 20150728
  Transmission Date: 20151125
  Serious: Yes (Hospitalization, Other)
  Sender: FDA-Public Use
  Company Number: US-GLAXOSMITHKLINE-A1018961A

PATIENT
  Age: 65 Year
  Sex: Female

DRUGS (12)
  1. FLOLAN [Suspect]
     Active Substance: EPOPROSTENOL SODIUM
     Dosage: UNK
     Dates: start: 20130315
  2. FLOLAN [Suspect]
     Active Substance: EPOPROSTENOL SODIUM
     Dosage: UNK
  3. FLOLAN [Suspect]
     Active Substance: EPOPROSTENOL SODIUM
     Dosage: UNK
     Dates: start: 20130315
  4. FLOLAN [Suspect]
     Active Substance: EPOPROSTENOL SODIUM
     Dosage: 40NG/KG/MIN CO
  5. FLOLAN [Suspect]
     Active Substance: EPOPROSTENOL SODIUM
     Dosage: 40NG/KG/MIN CONCEN 45,000NG/ML, PUMP RATE 70 ML/DAY, 1.5MG VIAL
     Route: 042
     Dates: start: 20130315
  6. FLOLAN [Suspect]
     Active Substance: EPOPROSTENOL SODIUM
     Dosage: 40 NG/KG/MIN
  7. FLOLAN [Suspect]
     Active Substance: EPOPROSTENOL SODIUM
     Dosage: 40 NG/KG/MIN (CONCENTRATION 45,000 NG/ML, PUMP RATE 70 ML/DAY, VIAL STRENGTH 1.5 MG), CO
     Route: 042
  8. FLOLAN [Suspect]
     Active Substance: EPOPROSTENOL SODIUM
     Indication: PULMONARY HYPERTENSION
     Dosage: 8 NG/KG/MIN CONTINUOUSLY19 NG/KG/MINUTE CONTINOUSLY CONCENTRATION 30,000 NG/ML, VIAL STRENGTH 1[...]
     Route: 042
     Dates: start: 20130314
  9. FLOLAN [Suspect]
     Active Substance: EPOPROSTENOL SODIUM
     Dosage: UNK
     Dates: start: 20130315
  10. FLOLAN [Suspect]
     Active Substance: EPOPROSTENOL SODIUM
     Dosage: UNK
     Dates: start: 20130315
  11. FLOLAN [Suspect]
     Active Substance: EPOPROSTENOL SODIUM
     Dosage: UNK
  12. FLOLAN [Suspect]
     Active Substance: EPOPROSTENOL SODIUM
     Dosage: UNK
     Dates: start: 20130315

REACTIONS (19)
  - Viral infection [Not Recovered/Not Resolved]
  - Limb discomfort [Unknown]
  - Catheter site infection [Unknown]
  - Myalgia [Unknown]
  - Abdominal distension [Unknown]
  - Nausea [Unknown]
  - Rash erythematous [Unknown]
  - Diarrhoea [Not Recovered/Not Resolved]
  - Dizziness [Unknown]
  - Catheter site rash [Unknown]
  - Catheter site swelling [Unknown]
  - Pericardial effusion [Unknown]
  - Infusion site erythema [Not Recovered/Not Resolved]
  - Fluid retention [Unknown]
  - Infusion site haemorrhage [Unknown]
  - Catheter site pain [Unknown]
  - Catheter site erythema [Unknown]
  - Weight increased [Unknown]
  - Nasopharyngitis [Unknown]

NARRATIVE: CASE EVENT DATE: 20130712
